FAERS Safety Report 8102027-5 (Version None)
Quarter: 2012Q1

REPORT INFORMATION
  Report Type: 
  Country: None (occurrence: None)
  Receive Date: 20120131
  Receipt Date: 20120123
  Transmission Date: 20120608
  Serious: Yes (Other)
  Sender: FDA-Public Use
  Company Number: PHFR2011GB006515

PATIENT
  Sex: Male

DRUGS (1)
  1. CLOZARIL [Suspect]
     Indication: SCHIZOPHRENIA
     Dosage: 125 MG, UNK
     Route: 048
     Dates: start: 20111010, end: 20111121

REACTIONS (8)
  - LEFT VENTRICULAR HYPERTROPHY [None]
  - EJECTION FRACTION DECREASED [None]
  - EOSINOPHILIA [None]
  - DEEP VEIN THROMBOSIS [None]
  - SYSTOLIC DYSFUNCTION [None]
  - MYOCARDITIS [None]
  - DYSPNOEA [None]
  - PERICARDIAL EFFUSION [None]
